FAERS Safety Report 8013534-8 (Version None)
Quarter: 2011Q4

REPORT INFORMATION
  Report Type: 
  Country: None (occurrence: None)
  Receive Date: 20111229
  Receipt Date: 20111219
  Transmission Date: 20120403
  Serious: Yes (Death)
  Sender: FDA-Public Use
  Company Number: US-PFIZER INC-2011310104

PATIENT
  Age: 23 Year
  Sex: Male

DRUGS (10)
  1. METOPROLOL TARTRATE [Suspect]
  2. BUPROPION HCL [Suspect]
  3. VERAPAMIL HCL [Suspect]
  4. HALOPERIDOL [Suspect]
  5. BENZTROPINE MESYLATE [Suspect]
  6. FEXOFENADINE [Suspect]
  7. WARFARIN SODIUM [Suspect]
  8. CEPHALEXIN [Suspect]
  9. CLINDAMYCIN HCL [Suspect]
  10. IBUPROFEN [Suspect]

REACTIONS (1)
  - COMPLETED SUICIDE [None]
